FAERS Safety Report 8262017-9 (Version None)
Quarter: 2012Q2

REPORT INFORMATION
  Report Type: 
  Country: None (occurrence: None)
  Receive Date: 20120402
  Receipt Date: 20120323
  Transmission Date: 20120825
  Serious: Yes (Other)
  Sender: FDA-Public Use
  Company Number: 2012SP016683

PATIENT
  Age: 35 Year
  Sex: Female

DRUGS (4)
  1. LITHIOFOR (LITHIUM SULFATE) [Suspect]
     Indication: PRODUCT USED FOR UNKNOWN INDICATION
     Dosage: 660 MG;ONCE;PO
     Route: 048
     Dates: start: 20111002, end: 20111002
  2. REMERON [Suspect]
     Indication: PRODUCT USED FOR UNKNOWN INDICATION
     Dosage: 30 MG;ONCE;PO
     Route: 048
     Dates: start: 20111002, end: 20111002
  3. ALCOHOL (ETHANOL) [Suspect]
     Indication: PRODUCT USED FOR UNKNOWN INDICATION
     Dosage: ;ONCE;
     Dates: start: 20111002
  4. LORAZEPAM [Suspect]
     Indication: PRODUCT USED FOR UNKNOWN INDICATION
     Dosage: 1 MG;ONCE;PO
     Route: 048
     Dates: start: 20111002, end: 20111002

REACTIONS (9)
  - OVERDOSE [None]
  - VISUAL IMPAIRMENT [None]
  - SUICIDE ATTEMPT [None]
  - FATIGUE [None]
  - DIARRHOEA [None]
  - HAEMODIALYSIS [None]
  - SOMNOLENCE [None]
  - VOMITING [None]
  - ATAXIA [None]
